FAERS Safety Report 11264787 (Version 1)
Quarter: 2015Q3

REPORT INFORMATION
  Report Type: Report from Study
  Country: US (occurrence: US)
  Receive Date: 20150713
  Receipt Date: 20150713
  Transmission Date: 20151125
  Serious: No
  Sender: FDA-Public Use
  Company Number: PHEH2014US017272

PATIENT
  Sex: Female

DRUGS (2)
  1. DIOVAN [Suspect]
     Active Substance: VALSARTAN
     Dosage: UNK (80 MG), UNK
     Route: 047
  2. DIOVAN [Suspect]
     Active Substance: VALSARTAN
     Dosage: UNK MG, UNK (DOUBLED UP)
     Route: 047

REACTIONS (2)
  - Incorrect dose administered [Unknown]
  - Memory impairment [Unknown]
